FAERS Safety Report 21831825 (Version 2)
Quarter: 2023Q1

REPORT INFORMATION
  Report Type: Spontaneous
  Country: GB (occurrence: GB)
  Receive Date: 20230106
  Receipt Date: 20230116
  Transmission Date: 20230418
  Serious: Yes (Other)
  Sender: FDA-Public Use
  Company Number: None

PATIENT

DRUGS (20)
  1. ACETAMINOPHEN [Suspect]
     Active Substance: ACETAMINOPHEN
     Indication: Radiculopathy
     Dosage: 1 GRAM, QID
     Route: 065
  2. IBUPROFEN [Suspect]
     Active Substance: IBUPROFEN
     Indication: Analgesic therapy
     Dosage: HAS BEEN TAKING 1 DAILY FOR ~4WEEKS, UNSURE OF STRENGTH)
     Route: 065
  3. IBUPROFEN [Suspect]
     Active Substance: IBUPROFEN
     Dosage: UNKNOWN, TID
     Route: 061
  4. DULOXETINE [Suspect]
     Active Substance: DULOXETINE
     Indication: Sciatica
     Dosage: 20 MILLIGRAM, PRN (NO LONGER TAKING REGULARLY AND ONLY AS PRN)
     Route: 065
  5. DULOXETINE [Suspect]
     Active Substance: DULOXETINE
     Dosage: 20MG; BD - NO LONGER TAKING REGULARLY AND ONLY AS PRN (BUT SCIATICA PAIN STILL PRESENT)
     Dates: start: 20221202
  6. WARFARIN [Suspect]
     Active Substance: WARFARIN
     Indication: Atrial fibrillation
     Dosage: TARGETRANGE: 2.0 - 3.0 (2.5 TARGET)
     Route: 065
  7. WARFARIN [Suspect]
     Active Substance: WARFARIN
     Dosage: 1 MG
  8. WARFARIN [Suspect]
     Active Substance: WARFARIN
     Dosage: MON+TUES 6MG, SAT+SUN 5MG
     Dates: start: 20221214
  9. GARLIC EXTRACT [ALLIUM SATIVUM BULB] [Concomitant]
     Indication: Product used for unknown indication
  10. MAGNESIUM [Concomitant]
     Active Substance: MAGNESIUM
     Indication: Circulatory collapse
  11. BISOPROLOL [Suspect]
     Active Substance: BISOPROLOL
     Indication: Product used for unknown indication
     Dosage: TAB 2.5MG OM STARTED ON THIS BY GP FOR SCIATICA PAIN, NO LONGER TAKING REGULARLY AND ONLY AS PRN (BU
  12. AMITRIPTYLINE [Concomitant]
     Active Substance: AMITRIPTYLINE
     Indication: Sciatica
     Dosage: 30MG ON,
  13. AMITRIPTYLINE [Concomitant]
     Active Substance: AMITRIPTYLINE
     Dosage: TAB 10MG ON STARTED ON THIS BY GP FOR SCIATICA PAIN, NO LONGER TAKING REGULARLY AND ONLY AS PRN (BUT
  14. NAPROXEN [Suspect]
     Active Substance: NAPROXEN
     Indication: Product used for unknown indication
  15. ATORVASTATIN [Suspect]
     Active Substance: ATORVASTATIN
     Indication: Radiculopathy
     Dosage: 20 MILLIGRAM, QD (ONE IN NIGHT)
  16. OMEPRAZOLE [Concomitant]
     Active Substance: OMEPRAZOLE
     Indication: Product used for unknown indication
     Dosage: 20 MILLIGRAM, BID
     Dates: start: 20221004
  17. FLUCLOXACILLIN [Suspect]
     Active Substance: FLUCLOXACILLIN
     Indication: Sciatica
     Dosage: 500 MILLIGRAM, QID, FOR 7/7 - COURSE COMPLETED
     Dates: start: 20221004
  18. AMITRIPTYLINE [Suspect]
     Active Substance: AMITRIPTYLINE
     Indication: Sciatica
     Dosage: GP INSTRUCTIONS ARE 30MG ON, DOSE INCREASED FOR SCIATICA PAIN, NOW REDUCED BACK TO 20MG ON
  19. AMLODIPINE [Suspect]
     Active Substance: AMLODIPINE BESYLATE
     Indication: Radiculopathy
     Dosage: TAB 10MG ON STARTED ON THIS BY GP FOR SCIATICA PAIN, NO LONGER TAKING REGULARLY AND ONLY AS PRN (BUT
  20. CODEINE PHOSPHATE [Concomitant]
     Active Substance: CODEINE PHOSPHATE
     Indication: Product used for unknown indication
     Dosage: 15-30MG QDS PRN, 30MG QDS TAKEN REGULARLY

REACTIONS (2)
  - Gastrointestinal haemorrhage [Recovered/Resolved]
  - International normalised ratio increased [Recovered/Resolved]
